FAERS Safety Report 23408676 (Version 1)
Quarter: 2024Q1

REPORT INFORMATION
  Report Type: Spontaneous
  Country: GB (occurrence: GB)
  Receive Date: 20240117
  Receipt Date: 20240117
  Transmission Date: 20240410
  Serious: Yes (Other)
  Sender: FDA-Public Use
  Company Number: None

PATIENT
  Age: 35 Year
  Sex: Male
  Weight: 78 kg

DRUGS (1)
  1. METHYLPHENIDATE HYDROCHLORIDE [Suspect]
     Active Substance: METHYLPHENIDATE HYDROCHLORIDE
     Indication: Attention deficit hyperactivity disorder
     Dosage: 54MG ONCE A DAY

REACTIONS (8)
  - Medication error [Unknown]
  - Blood pressure measurement [Not Recovered/Not Resolved]
  - Pyrexia [Not Recovered/Not Resolved]
  - Dependence [Recovering/Resolving]
  - Heart rate increased [Recovering/Resolving]
  - Emotional distress [Not Recovered/Not Resolved]
  - Panic attack [Recovering/Resolving]
  - Suicidal ideation [Recovering/Resolving]

NARRATIVE: CASE EVENT DATE: 20230901
